FAERS Safety Report 25953288 (Version 2)
Quarter: 2025Q4

REPORT INFORMATION
  Report Type: Report from Study
  Country: US (occurrence: US)
  Receive Date: 20251023
  Receipt Date: 20251127
  Transmission Date: 20260117
  Serious: Yes (Hospitalization)
  Sender: DECIPHERA PHARMACEUTICALS
  Company Number: US-DECIPHERA PHARMACEUTICALS LLC-2025US001333

PATIENT
  Age: 72 Year
  Sex: Male

DRUGS (2)
  1. QINLOCK [Suspect]
     Active Substance: RIPRETINIB
     Indication: Malignant connective tissue neoplasm
     Dosage: 100 MILLIGRAM, QD (50 MG, 2 TABLETS)
     Dates: start: 20250915, end: 2025
  2. QINLOCK [Suspect]
     Active Substance: RIPRETINIB
     Indication: Soft tissue sarcoma

REACTIONS (2)
  - Heart rate decreased [Unknown]
  - Blood potassium abnormal [Unknown]

NARRATIVE: CASE EVENT DATE: 20250101
